FAERS Safety Report 19195515 (Version 1)
Quarter: 2021Q2

REPORT INFORMATION
  Report Type: Report from Study
  Country: US (occurrence: US)
  Receive Date: 20210429
  Receipt Date: 20210429
  Transmission Date: 20210717
  Serious: Yes (Hospitalization)
  Sender: FDA-Public Use
  Company Number: US-GW PHARMA-202104USGW02054

PATIENT

DRUGS (1)
  1. EPIDIOLEX [Suspect]
     Active Substance: CANNABIDIOL
     Indication: LENNOX-GASTAUT SYNDROME
     Dosage: 7.74 MG/KG/DAY 1000 MILLIGRAM, QD
     Route: 048
     Dates: start: 2018

REACTIONS (2)
  - Hospitalisation [Unknown]
  - Condition aggravated [Unknown]
